FAERS Safety Report 14835498 (Version 1)
Quarter: 2018Q2

REPORT INFORMATION
  Report Type: Spontaneous
  Country: FR (occurrence: FR)
  Receive Date: 20180502
  Receipt Date: 20180502
  Transmission Date: 20180711
  Serious: Yes (Other)
  Sender: FDA-Public Use
  Company Number: FR-ROCHE-2113380

PATIENT
  Age: 43 Year
  Sex: Female

DRUGS (4)
  1. PACLITAXEL. [Concomitant]
     Active Substance: PACLITAXEL
     Indication: BREAST CANCER
     Dosage: CF COMMENTAIRE
     Route: 041
     Dates: start: 20170616, end: 20171229
  2. PERJETA [Suspect]
     Active Substance: PERTUZUMAB
     Indication: BREAST CANCER
     Dosage: INCONNUE
     Route: 041
     Dates: start: 20170616, end: 20171222
  3. TRASTUZUMAB. [Concomitant]
     Active Substance: TRASTUZUMAB
     Indication: BREAST CANCER
     Dosage: CF COMMENTAIRE
     Route: 041
  4. CAPECITABINE. [Suspect]
     Active Substance: CAPECITABINE
     Indication: BREAST CANCER
     Dosage: CF COMMENTAIRE
     Route: 048
     Dates: start: 20170616, end: 20171229

REACTIONS (1)
  - Colitis ischaemic [Recovered/Resolved]
